FAERS Safety Report 20624558 (Version 1)
Quarter: 2022Q1

REPORT INFORMATION
  Report Type: Spontaneous
  Country: CN (occurrence: CN)
  Receive Date: 20220322
  Receipt Date: 20220322
  Transmission Date: 20220423
  Serious: Yes (Other)
  Sender: FDA-Public Use
  Company Number: CN-BAXTER-2022BAX006140

PATIENT
  Age: 58 Year
  Sex: Female
  Weight: 51.5 kg

DRUGS (19)
  1. CYCLOPHOSPHAMIDE [Suspect]
     Active Substance: CYCLOPHOSPHAMIDE
     Indication: Breast cancer female
     Dosage: 1-3 CHEMOTHERAPY, ENDOXAN CTX DILUTED WITH DILUENT NS
     Route: 042
  2. CYCLOPHOSPHAMIDE [Suspect]
     Active Substance: CYCLOPHOSPHAMIDE
     Dosage: 4TH CHEMOTHERAPY, ENDOXAN CTX 750 MG DILUTED WITH DILUENT NS (40ML)
     Route: 042
     Dates: start: 20220210, end: 20220210
  3. CYCLOPHOSPHAMIDE [Suspect]
     Active Substance: CYCLOPHOSPHAMIDE
     Dosage: DOSE RE-INTRODUCED
     Route: 042
  4. SODIUM CHLORIDE [Suspect]
     Active Substance: SODIUM CHLORIDE
     Indication: Medication dilution
     Dosage: 1-3 CHEMOTHERAPY, ENDOXAN CTX DILUTED WITH DILUENT NS
     Route: 042
  5. SODIUM CHLORIDE [Suspect]
     Active Substance: SODIUM CHLORIDE
     Dosage: 4TH CHEMOTHERAPY, ENDOXAN CTX 750 MG DILUTED WITH DILUENT NS (40ML)
     Route: 042
     Dates: start: 20220210, end: 20220210
  6. SODIUM CHLORIDE [Suspect]
     Active Substance: SODIUM CHLORIDE
     Dosage: DOSE RE-INTRODUCED
     Route: 042
  7. SODIUM CHLORIDE [Suspect]
     Active Substance: SODIUM CHLORIDE
     Dosage: 1-3 CHEMOTHERAPY, TAXOTERE DILUTED WITH DILUENT NS
     Route: 041
  8. SODIUM CHLORIDE [Suspect]
     Active Substance: SODIUM CHLORIDE
     Dosage: 4TH CHEMOTHERAPY, TAXOTERE (100 MG) DILUTED WITH DILUENT NS 250ML
     Route: 041
     Dates: start: 20220210, end: 20220210
  9. SODIUM CHLORIDE [Suspect]
     Active Substance: SODIUM CHLORIDE
     Dosage: DOSE RE-INTRODUCED
     Route: 041
  10. SODIUM CHLORIDE [Suspect]
     Active Substance: SODIUM CHLORIDE
     Dosage: 1-3 CHEMOTHERAPY, PHARMORUBICIN DILUTED WITH DILUENT NS
     Route: 041
  11. SODIUM CHLORIDE [Suspect]
     Active Substance: SODIUM CHLORIDE
     Dosage: 4TH CHEMOTHERAPY, PHARMORUBICIN (100 MG) DILUTED WITH NS (100ML)
     Route: 041
     Dates: start: 20220210, end: 20220210
  12. SODIUM CHLORIDE [Suspect]
     Active Substance: SODIUM CHLORIDE
     Dosage: DOSE RE-INTRODUCED
     Route: 041
  13. TAXOTERE [Suspect]
     Active Substance: DOCETAXEL
     Indication: Breast cancer female
     Dosage: 1-3 CHEMOTHERAPY, TAXOTERE DILUTED WITH DILUENT NS
     Route: 041
  14. TAXOTERE [Suspect]
     Active Substance: DOCETAXEL
     Dosage: 4TH CHEMOTHERAPY, TAXOTERE (100 MG) DILUTED WITH DILUENT NS 250ML
     Route: 041
     Dates: start: 20220210, end: 20220210
  15. TAXOTERE [Suspect]
     Active Substance: DOCETAXEL
     Dosage: DOSE RE-INTRODUCED
     Route: 041
  16. EPIRUBICIN [Suspect]
     Active Substance: EPIRUBICIN
     Indication: Breast cancer female
     Dosage: 1-3 CHEMOTHERAPY, PHARMORUBICIN DILUTED WITH DILUENT NS
     Route: 041
  17. EPIRUBICIN [Suspect]
     Active Substance: EPIRUBICIN
     Dosage: 4TH CHEMOTHERAPY, PHARMORUBICIN (100 MG) DILUTED WITH NS (100ML)
     Route: 041
     Dates: start: 20220210, end: 20220210
  18. EPIRUBICIN [Suspect]
     Active Substance: EPIRUBICIN
     Dosage: DOSE RE-INTRODUCED
     Route: 041
  19. Jinyouli xinruibai [Concomitant]
     Indication: Product used for unknown indication
     Dosage: ON SECOND DAY
     Route: 058
     Dates: start: 20220211

REACTIONS (2)
  - White blood cell count decreased [Recovered/Resolved]
  - Agranulocytosis [Recovered/Resolved]

NARRATIVE: CASE EVENT DATE: 20220217
